FAERS Safety Report 25858805 (Version 1)
Quarter: 2025Q3

REPORT INFORMATION
  Report Type: Spontaneous
  Country: US (occurrence: None)
  Receive Date: 20250926
  Receipt Date: 20250926
  Transmission Date: 20251021
  Serious: Yes (Other)
  Sender: FDA-CTU
  Company Number: None

PATIENT
  Age: 75 Year
  Sex: Female

DRUGS (1)
  1. RINVOQ [Suspect]
     Active Substance: UPADACITINIB
     Dosage: FREQUENCY : DAILY;?

REACTIONS (7)
  - Adverse drug reaction [None]
  - Bradycardia [None]
  - Red blood cell count decreased [None]
  - White blood cell count increased [None]
  - Platelet count increased [None]
  - Cough [None]
  - Gastrointestinal disorder [None]
